FAERS Safety Report 9284342 (Version 1)
Quarter: 2013Q2

REPORT INFORMATION
  Report Type: Spontaneous
  Country: IT (occurrence: IT)
  Receive Date: 20130510
  Receipt Date: 20130510
  Transmission Date: 20140414
  Serious: Yes (Other)
  Sender: FDA-Public Use
  Company Number: IT-TEVA-403082ISR

PATIENT
  Age: 42 Year
  Sex: Male

DRUGS (1)
  1. AMOXICILLINA TRIIDRATO [Suspect]
     Dosage: 1 DOSAGE FORMS DAILY;
     Route: 048
     Dates: start: 20130401, end: 20130402

REACTIONS (5)
  - Anaphylactic shock [Recovered/Resolved]
  - Drug administration error [Recovered/Resolved]
  - Hypotension [Recovered/Resolved]
  - Generalised erythema [Recovered/Resolved]
  - Malaise [Recovered/Resolved]
